FAERS Safety Report 9720226 (Version 1)
Quarter: 2013Q4

REPORT INFORMATION
  Report Type: Report from Study
  Country: GB (occurrence: GB)
  Receive Date: 20131129
  Receipt Date: 20131129
  Transmission Date: 20140711
  Serious: Yes (Death)
  Sender: FDA-Public Use
  Company Number: GB-ROCHE-1309395

PATIENT
  Sex: 0

DRUGS (3)
  1. BEVACIZUMAB [Suspect]
     Indication: PRODUCT USED FOR UNKNOWN INDICATION
     Dosage: LAST DOSE ADMINISTRED WAS ON 16/AUG/213.
     Route: 042
  2. CAPECITABINE [Suspect]
     Indication: PRODUCT USED FOR UNKNOWN INDICATION
     Dosage: LAST DOSE ADMINISTRED WAS ON 16/AUG/213.
     Route: 048
  3. OXALIPLATIN [Concomitant]
     Dosage: LAST DOSE ADMINISTRED WAS ON 16/AUG/213.
     Route: 065

REACTIONS (1)
  - Death [Fatal]
